FAERS Safety Report 5635328-0 (Version None)
Quarter: 2008Q1

REPORT INFORMATION
  Report Type: 
  Country: None (occurrence: None)
  Receive Date: 20080222
  Receipt Date: 20080211
  Transmission Date: 20080703
  Serious: Yes (Other)
  Sender: FDA-Public Use
  Company Number: CA-PFIZER INC-2008004931

PATIENT
  Age: 61 Year
  Sex: Female

DRUGS (7)
  1. LYRICA [Suspect]
     Indication: ARTHRITIS
     Route: 048
  2. LYRICA [Suspect]
     Indication: FIBROMYALGIA
  3. PANTOLOC ^SOLVAY^ [Concomitant]
  4. LASIX [Concomitant]
  5. ZESTRIL [Concomitant]
  6. CALCIUM [Concomitant]
  7. SINGULAIR [Concomitant]

REACTIONS (7)
  - APHONIA [None]
  - CONTUSION [None]
  - HYPERSENSITIVITY [None]
  - OEDEMA PERIPHERAL [None]
  - OESOPHAGEAL OEDEMA [None]
  - OESOPHAGEAL PAIN [None]
  - PERIORBITAL HAEMATOMA [None]
